FAERS Safety Report 4846918-7 (Version None)
Quarter: 2005Q4

REPORT INFORMATION
  Report Type: 
  Country: None (occurrence: None)
  Receive Date: 20051202
  Receipt Date: 20051118
  Transmission Date: 20060501
  Serious: Yes (Other)
  Sender: FDA-Public Use
  Company Number: 2005JP002256

PATIENT
  Age: 14 Month
  Sex: Female

DRUGS (3)
  1. PROGRAF [Suspect]
     Indication: BONE MARROW TRANSPLANT
  2. BUSULFAN (BUSULFAN) [Suspect]
     Dosage: SEE IMAGE
  3. METHOTREXATE [Concomitant]

REACTIONS (12)
  - ASCITES [None]
  - CYTOKINE RELEASE SYNDROME [None]
  - GENERALISED OEDEMA [None]
  - HEPATOMEGALY [None]
  - NEUTROPHIL COUNT DECREASED [None]
  - PLATELET COUNT DECREASED [None]
  - PLEURAL EFFUSION [None]
  - RESPIRATORY DISORDER [None]
  - TACHYPNOEA [None]
  - VENOOCCLUSIVE LIVER DISEASE [None]
  - WEIGHT INCREASED [None]
  - WHITE BLOOD CELL COUNT DECREASED [None]
